FAERS Safety Report 24361605 (Version 1)
Quarter: 2024Q3

REPORT INFORMATION
  Report Type: Other
  Country: SA (occurrence: SA)
  Receive Date: 20240925
  Receipt Date: 20240925
  Transmission Date: 20241017
  Serious: Yes (Death)
  Sender: ORBION PHARMACEUTICALS
  Company Number: SA-OrBion Pharmaceuticals Private Limited-2162008

PATIENT
  Sex: Male

DRUGS (4)
  1. LEVETIRACETAM [Suspect]
     Active Substance: LEVETIRACETAM
     Indication: Seizure
  2. PHENOBARBITAL [Suspect]
     Active Substance: PHENOBARBITAL
  3. LORAZEPAM [Suspect]
     Active Substance: LORAZEPAM
  4. MIDAZOLAM [Suspect]
     Active Substance: MIDAZOLAM

REACTIONS (1)
  - Drug ineffective [Fatal]
